FAERS Safety Report 14925133 (Version 1)
Quarter: 2018Q2

REPORT INFORMATION
  Report Type: Spontaneous
  Country: MX (occurrence: MX)
  Receive Date: 20180522
  Receipt Date: 20180522
  Transmission Date: 20180711
  Serious: Yes (Life-Threatening, Hospitalization)
  Sender: FDA-Public Use
  Company Number: MX-MYLANLABS-2018M1033096

PATIENT
  Age: 42 Year
  Sex: Male

DRUGS (2)
  1. IBUPROFEN. [Suspect]
     Active Substance: IBUPROFEN
     Route: 048
  2. IBUPROFEN. [Suspect]
     Active Substance: IBUPROFEN
     Indication: HEADACHE
     Dosage: TOTAL DAILY DOSE: 3.2G
     Route: 048

REACTIONS (11)
  - Metabolic acidosis [Recovered/Resolved]
  - Electrocardiogram U wave present [Unknown]
  - Restlessness [Unknown]
  - Electrocardiogram ST segment depression [Unknown]
  - Dysstasia [Unknown]
  - Gait disturbance [Unknown]
  - Acute kidney injury [Recovered/Resolved]
  - Respiratory distress [Unknown]
  - Hypokalaemia [Recovered/Resolved]
  - Renal tubular acidosis [Recovered/Resolved]
  - Mental status changes [Unknown]
